FAERS Safety Report 9604291 (Version 2)
Quarter: 2013Q4

REPORT INFORMATION
  Report Type: Spontaneous
  Country: US (occurrence: US)
  Receive Date: 20131008
  Receipt Date: 20131104
  Transmission Date: 20140711
  Serious: No
  Sender: FDA-Public Use
  Company Number: US-009507513-1310USA002219

PATIENT
  Age: 19 Year
  Sex: Female

DRUGS (10)
  1. SAPHRIS [Suspect]
     Indication: SCHIZOPHRENIA
     Dosage: 0.5 DF, QAM
     Route: 060
     Dates: start: 20130805
  2. SAPHRIS [Suspect]
     Dosage: 1.5 DF, HS
     Route: 060
     Dates: start: 20130805
  3. SAPHRIS [Suspect]
     Dosage: UNK
     Route: 060
     Dates: start: 2013
  4. SAPHRIS [Suspect]
     Dosage: 0.5 DF, QAM
     Route: 060
     Dates: start: 20130805
  5. SAPHRIS [Suspect]
     Dosage: 1.5 DF, HS
     Route: 060
     Dates: start: 20130805
  6. SAPHRIS [Suspect]
     Dosage: UNK
     Route: 060
     Dates: start: 2013
  7. BUSPAR [Concomitant]
  8. COGENTIN [Concomitant]
  9. RITALIN [Concomitant]
  10. DIAZEPAM [Concomitant]

REACTIONS (3)
  - Pollakiuria [Not Recovered/Not Resolved]
  - Urinary tract infection [Not Recovered/Not Resolved]
  - Polyuria [Not Recovered/Not Resolved]
